FAERS Safety Report 17523029 (Version 1)
Quarter: 2020Q1

REPORT INFORMATION
  Report Type: Spontaneous
  Country: US (occurrence: US)
  Receive Date: 20200310
  Receipt Date: 20200310
  Transmission Date: 20200409
  Serious: No
  Sender: FDA-Public Use
  Company Number: US-GALDERMA-US19058198

PATIENT
  Age: 43 Year
  Sex: Female

DRUGS (6)
  1. PROACTIV MD ADAPALENE ACNE TREATMENT [Suspect]
     Active Substance: ADAPALENE
     Indication: DUST ALLERGY
     Dosage: 0.1%
     Route: 061
     Dates: start: 20190307, end: 20190822
  2. PROACTIV MD DAILY OIL CONTROL SPF 30 [Suspect]
     Active Substance: AVOBENZONE\OCTISALATE\OCTOCRYLENE
     Indication: DUST ALLERGY
     Route: 061
     Dates: start: 20190307, end: 20190822
  3. PROACTIV GREEN TEA MOISTURIZER [Concomitant]
     Active Substance: COSMETICS
     Indication: DUST ALLERGY
     Route: 061
     Dates: start: 20190307, end: 20190822
  4. PROACTIV MD BALANCING TONER [Concomitant]
     Active Substance: COSMETICS
     Indication: DUST ALLERGY
     Route: 061
     Dates: start: 20190307, end: 20190822
  5. PROACTIV EYE BRIGHTENING SERUM [Concomitant]
     Active Substance: COSMETICS
     Indication: DUST ALLERGY
     Route: 061
     Dates: start: 20190307, end: 20190822
  6. PROACTIV MD DEEP CLEANSING FACE WASH [Concomitant]
     Active Substance: COSMETICS
     Indication: DUST ALLERGY
     Route: 061
     Dates: start: 20190307, end: 20190822

REACTIONS (4)
  - Inappropriate schedule of product administration [Recovered/Resolved]
  - Acne [Recovering/Resolving]
  - Overdose [Recovered/Resolved]
  - Erythema [Recovering/Resolving]

NARRATIVE: CASE EVENT DATE: 20190307
